FAERS Safety Report 17983250 (Version 1)
Quarter: 2020Q3

REPORT INFORMATION
  Report Type: Spontaneous
  Country: US (occurrence: US)
  Receive Date: 20200703
  Receipt Date: 20200703
  Transmission Date: 20201103
  Serious: Yes (Hospitalization)
  Sender: FDA-Public Use
  Company Number: None

PATIENT
  Age: 72 Year
  Sex: Male
  Weight: 101 kg

DRUGS (1)
  1. LORAZEPAM (LORAZEPAM 2MG/ML INJ) [Suspect]
     Active Substance: LORAZEPAM
     Indication: NEOPLASM MALIGNANT
     Dates: start: 20191213, end: 20191213

REACTIONS (7)
  - Lethargy [None]
  - Chronic obstructive pulmonary disease [None]
  - Hypercapnia [None]
  - Respiratory failure [None]
  - Iatrogenic injury [None]
  - Overdose [None]
  - Unresponsive to stimuli [None]

NARRATIVE: CASE EVENT DATE: 20191213
